FAERS Safety Report 15854432 (Version 3)
Quarter: 2019Q1

REPORT INFORMATION
  Report Type: Spontaneous
  Country: FR (occurrence: FR)
  Receive Date: 20190122
  Receipt Date: 20190314
  Transmission Date: 20190417
  Serious: Yes (Hospitalization, Other)
  Sender: FDA-Public Use
  Company Number: FR-TAIHO ONCOLOGY  INC-IM-2019-00019

PATIENT
  Age: 48 Year
  Sex: Female

DRUGS (4)
  1. MORPHINE HYDROCHLORIDE [Suspect]
     Active Substance: MORPHINE HYDROCHLORIDE
     Indication: PAIN
     Dosage: UNK UNK, PRN
     Route: 048
     Dates: start: 20181228
  2. LONSURF [Suspect]
     Active Substance: TIPIRACIL HYDROCHLORIDE\TRIFLURIDINE
     Dosage: 65 MG (UNK MG /M2) BID, ON DAYS 1-5 AND 8-12 OF EACH 28-DAY CYCLE, ORALLY
     Route: 048
     Dates: start: 20190109, end: 201901
  3. MOVENTIG [Concomitant]
     Active Substance: NALOXEGOL OXALATE
     Indication: PRODUCT USED FOR UNKNOWN INDICATION
     Dosage: 1 DF, QD
     Route: 048
     Dates: start: 201811
  4. LONSURF [Suspect]
     Active Substance: TIPIRACIL HYDROCHLORIDE\TRIFLURIDINE
     Indication: COLORECTAL CANCER METASTATIC
     Dosage: 65 MG (UNK MG /M2) BID, ON DAYS 1-5 AND 8-12 OF EACH 28-DAY CYCLE, ORALLY
     Route: 048
     Dates: start: 20181125

REACTIONS (8)
  - Feeling hot [Recovered/Resolved]
  - General physical health deterioration [Unknown]
  - Ileus [Recovered/Resolved]
  - Decreased appetite [Recovering/Resolving]
  - Feeling cold [Recovered/Resolved]
  - Product availability issue [Recovered/Resolved]
  - Gastrooesophageal reflux disease [Recovering/Resolving]
  - Inappropriate schedule of product administration [Recovered/Resolved]

NARRATIVE: CASE EVENT DATE: 201812
